FAERS Safety Report 13070955 (Version 12)
Quarter: 2020Q3

REPORT INFORMATION
  Report Type: Spontaneous
  Country: US (occurrence: US)
  Receive Date: 20161229
  Receipt Date: 20200910
  Transmission Date: 20201102
  Serious: Yes (Congenital Anomaly, Other)
  Sender: FDA-Public Use
  Company Number: PHEH2016US033836

PATIENT
  Sex: Female

DRUGS (3)
  1. ZOFRAN [Suspect]
     Active Substance: ONDANSETRON HYDROCHLORIDE
     Indication: FOETAL EXPOSURE DURING PREGNANCY
     Dosage: MOTHER DOSE: 4 MG, UNK
     Route: 064
  2. ZOFRAN [Suspect]
     Active Substance: ONDANSETRON HYDROCHLORIDE
     Indication: FOETAL EXPOSURE DURING PREGNANCY
     Route: 064
  3. ZOFRAN ODT [Suspect]
     Active Substance: ONDANSETRON HYDROCHLORIDE
     Indication: FOETAL EXPOSURE DURING PREGNANCY
     Dosage: MOTHER DOSE: 4 MG, UNK
     Route: 064

REACTIONS (57)
  - Ventricular septal defect [Unknown]
  - Heart disease congenital [Unknown]
  - Congenital scoliosis [Unknown]
  - Velo-cardio-facial syndrome [Unknown]
  - Sepsis neonatal [Recovered/Resolved]
  - Bronchial hyperreactivity [Unknown]
  - Wheezing [Unknown]
  - Nasal congestion [Unknown]
  - Otitis externa [Unknown]
  - Pneumothorax [Unknown]
  - Otitis media chronic [Unknown]
  - Poikilocytosis [Unknown]
  - Pharyngitis [Unknown]
  - Ligament sprain [Unknown]
  - Middle ear effusion [Unknown]
  - Transposition of the great vessels [Unknown]
  - Congenital mitral valve incompetence [Unknown]
  - Fallot^s tetralogy [Unknown]
  - Fatigue [Unknown]
  - Limb injury [Unknown]
  - Acne [Unknown]
  - Otitis media acute [Unknown]
  - Pulmonary artery stenosis congenital [Unknown]
  - Tricuspid valve incompetence [Unknown]
  - Cardiac murmur [Unknown]
  - Foot fracture [Unknown]
  - Upper respiratory tract infection [Unknown]
  - Ear pain [Unknown]
  - Congenital pulmonary valve atresia [Unknown]
  - Congenital tricuspid valve incompetence [Unknown]
  - Infantile apnoea [Recovered/Resolved]
  - Atelectasis [Unknown]
  - Deafness [Unknown]
  - Dysuria [Unknown]
  - Erythema [Unknown]
  - Pyrexia [Unknown]
  - Atrial septal defect [Unknown]
  - DiGeorge^s syndrome [Unknown]
  - Pleural effusion [Not Recovered/Not Resolved]
  - Lower respiratory tract infection [Unknown]
  - Syncope [Unknown]
  - Polychromasia [Unknown]
  - Rhinitis [Unknown]
  - Sinusitis [Unknown]
  - Patent ductus arteriosus [Unknown]
  - Cardiac septal hypertrophy [Unknown]
  - Pulmonary oedema [Unknown]
  - Pulmonary valve incompetence [Unknown]
  - Foetal exposure during pregnancy [Unknown]
  - Injury [Unknown]
  - Anisocytosis [Unknown]
  - Oropharyngeal pain [Unknown]
  - Back pain [Unknown]
  - Cyanosis neonatal [Unknown]
  - Neonatal respiratory distress [Unknown]
  - Cardiomegaly [Unknown]
  - Rash [Unknown]
